FAERS Safety Report 7800321-6 (Version None)
Quarter: 2011Q4

REPORT INFORMATION
  Report Type: 
  Country: None (occurrence: None)
  Receive Date: 20111006
  Receipt Date: 20110926
  Transmission Date: 20120403
  Serious: Yes (Death, Other)
  Sender: FDA-Public Use
  Company Number: US-BAYER-201041842NA

PATIENT
  Age: 74 Year
  Sex: Female
  Weight: 57 kg

DRUGS (20)
  1. DIOVAN [Concomitant]
  2. ACETYLSALICYLIC ACID SRT [Concomitant]
  3. SOLU-MEDROL [Concomitant]
     Dosage: 1 G, UNK
     Route: 042
  4. SUCCINYLCHOLINE CHLORIDE [Concomitant]
  5. RED BLOOD CELLS [Concomitant]
     Dosage: 6 U, UNK
     Route: 042
     Dates: start: 20071005
  6. TRASYLOL [Suspect]
     Indication: STERNOTOMY
     Dosage: 200 ML, PRIME
     Route: 042
     Dates: start: 20071005, end: 20071005
  7. HEPARIN [Concomitant]
     Dosage: 200 IU, UNK
     Route: 042
  8. PLATELETS [Concomitant]
     Dosage: 2 U, UNK
     Route: 042
     Dates: start: 20071005
  9. CRYOPRECIPITATES [Concomitant]
     Dosage: 1 U, UNK
     Route: 042
     Dates: start: 20071005
  10. TRASYLOL [Suspect]
     Indication: AORTIC VALVE REPLACEMENT
  11. AMBIEN [Concomitant]
  12. LASIX [Concomitant]
  13. PROTAMINE [Concomitant]
     Dosage: 300
     Route: 042
  14. TRASYLOL [Suspect]
     Indication: CORONARY ARTERY BYPASS
  15. TOPROL-XL [Concomitant]
  16. VERSED [Concomitant]
  17. PENTOTHAL [Concomitant]
  18. CRESTOR [Concomitant]
  19. NIMBEX [Concomitant]
  20. FRESH FROZEN PLASMA [Concomitant]
     Dosage: 4 U, UNK
     Route: 042
     Dates: start: 20071005

REACTIONS (13)
  - DEATH [None]
  - CARDIAC DISORDER [None]
  - STRESS [None]
  - RENAL IMPAIRMENT [None]
  - EMOTIONAL DISTRESS [None]
  - UNEVALUABLE EVENT [None]
  - MULTI-ORGAN FAILURE [None]
  - RENAL FAILURE [None]
  - RENAL INJURY [None]
  - FEAR [None]
  - RESPIRATORY FAILURE [None]
  - PAIN [None]
  - ANXIETY [None]
